FAERS Safety Report 4686413-1 (Version None)
Quarter: 2005Q2

REPORT INFORMATION
  Report Type: 
  Country: None (occurrence: None)
  Receive Date: 20050606
  Receipt Date: 20050525
  Transmission Date: 20051028
  Serious: Yes (Life-Threatening, Hospitalization)
  Sender: FDA-Public Use
  Company Number: 129-CTHAL-04050263

PATIENT
  Age: 78 Year
  Sex: Female
  Weight: 60 kg

DRUGS (7)
  1. THALIDOMIDE/PLACEBO [Suspect]
     Indication: MULTIPLE MYELOMA
     Dosage: 50 MG, DAILY, ORAL
     Route: 048
     Dates: start: 20040302, end: 20040509
  2. DEXAMETHASONE [Suspect]
     Indication: MULTIPLE MYELOMA
     Dosage: 40 MG, X4DAYS 3 TIMES MONTHLY, ORAL
     Route: 048
     Dates: start: 20040506, end: 20040509
  3. EPOETIN         (EPOETIN ALFA) [Concomitant]
  4. METOPROLOL TARTRATE [Concomitant]
  5. GLIMEPIRIDE [Concomitant]
  6. HYDROXYZINE [Concomitant]
  7. FENTANYL [Concomitant]

REACTIONS (3)
  - ABDOMINAL PAIN [None]
  - GASTROINTESTINAL PERFORATION [None]
  - GENERAL PHYSICAL HEALTH DETERIORATION [None]
